FAERS Safety Report 6838504-4 (Version None)
Quarter: 2010Q3

REPORT INFORMATION
  Report Type: 
  Country: None (occurrence: None)
  Receive Date: 20100713
  Receipt Date: 20070613
  Transmission Date: 20110219
  Serious: No
  Sender: FDA-Public Use
  Company Number: US-PFIZER INC-2007050234

PATIENT
  Sex: Male
  Weight: 74.5 kg

DRUGS (5)
  1. CHANTIX [Suspect]
     Indication: SMOKING CESSATION THERAPY
     Dates: start: 20070612
  2. LOTREL [Concomitant]
     Indication: HYPERTENSION
  3. ALEVE (CAPLET) [Concomitant]
  4. ACETYLSALICYLIC ACID [Concomitant]
  5. ALPRAZOLAM [Concomitant]
     Indication: INSOMNIA

REACTIONS (3)
  - INSOMNIA [None]
  - TACHYPHRENIA [None]
  - THROAT IRRITATION [None]
